FAERS Safety Report 14715050 (Version 1)
Quarter: 2018Q2

REPORT INFORMATION
  Report Type: Spontaneous
  Country: US (occurrence: US)
  Receive Date: 20180404
  Receipt Date: 20180404
  Transmission Date: 20180711
  Serious: No
  Sender: FDA-Public Use
  Company Number: US-ALLERGAN-1712759US

PATIENT
  Age: 76 Year
  Sex: Male

DRUGS (3)
  1. MYRBETRIQ [Suspect]
     Active Substance: MIRABEGRON
     Indication: POLLAKIURIA
     Dosage: 50 MG, QD
     Route: 065
     Dates: start: 20160413, end: 20160428
  2. MILK OF MAGNESIA [Concomitant]
     Active Substance: MAGNESIUM HYDROXIDE
     Indication: PRODUCT USED FOR UNKNOWN INDICATION
     Dosage: UNK, UNKNOWN
     Route: 065
  3. OXYBUTYNIN UNK [Suspect]
     Active Substance: OXYBUTYNIN
     Indication: PRODUCT USED FOR UNKNOWN INDICATION
     Dosage: UNK, UNKNOWN
     Route: 065

REACTIONS (5)
  - Somnolence [Recovered/Resolved]
  - Urine flow decreased [Not Recovered/Not Resolved]
  - Fatigue [Recovered/Resolved]
  - Bladder pain [Unknown]
  - Discomfort [Unknown]

NARRATIVE: CASE EVENT DATE: 20160418
